FAERS Safety Report 8844597 (Version 2)
Quarter: 2012Q4

REPORT INFORMATION
  Report Type: 
  Country: JP (occurrence: JP)
  Receive Date: 20121017
  Receipt Date: 20121019
  Transmission Date: 20130627
  Serious: Yes (Hospitalization)
  Sender: FDA-Public Use
  Company Number: JP-GENZYME-FLUD-1001575

PATIENT
  Age: 55 Year
  Sex: Male

DRUGS (4)
  1. FLUDARA [Suspect]
     Indication: B-CELL LYMPHOMA
     Dosage: UNK (3 cycles received)
     Route: 065
  2. RITUXIMAB [Concomitant]
     Indication: B-CELL LYMPHOMA
     Dosage: 2 cycles and 13 times repeated single administration
     Route: 065
  3. CYCLOPHOSPHAMIDE [Concomitant]
     Indication: B-CELL LYMPHOMA
     Dosage: UNK (2 cycles)
     Route: 065
  4. MITOXANTRONE [Concomitant]
     Indication: B-CELL LYMPHOMA
     Dosage: UNK (3 cycles)
     Route: 065

REACTIONS (2)
  - Interleukin-2 receptor increased [Not Recovered/Not Resolved]
  - Lymphadenopathy [Not Recovered/Not Resolved]
